FAERS Safety Report 7270858-X (Version None)
Quarter: 2011Q1

REPORT INFORMATION
  Report Type: 
  Country: None (occurrence: None)
  Receive Date: 20110128
  Receipt Date: 20110128
  Transmission Date: 20110831
  Serious: Yes (Other)
  Sender: FDA-Public Use
  Company Number: None

PATIENT
  Age: 64 Year
  Sex: Female
  Weight: 51.7101 kg

DRUGS (3)
  1. BENADRYL [Concomitant]
  2. FLEBOGAMMA [Suspect]
     Indication: LYMPHOMA
     Dosage: 20 GM CV PORT 1 HR 45 MIN? IV
     Route: 042
     Dates: start: 20110114, end: 20110114
  3. TYLENOL [Concomitant]

REACTIONS (11)
  - AMNESIA [None]
  - PULMONARY CONGESTION [None]
  - SOMNOLENCE [None]
  - POST HERPETIC NEURALGIA [None]
  - PAIN IN EXTREMITY [None]
  - DELIRIUM [None]
  - BODY TEMPERATURE INCREASED [None]
  - GAIT DISTURBANCE [None]
  - GRIP STRENGTH DECREASED [None]
  - LACERATION [None]
  - COORDINATION ABNORMAL [None]
